FAERS Safety Report 4984532-3 (Version None)
Quarter: 2006Q2

REPORT INFORMATION
  Report Type: 
  Country: None (occurrence: None)
  Receive Date: 20060421
  Receipt Date: 20060407
  Transmission Date: 20061013
  Serious: Yes (Hospitalization)
  Sender: FDA-Public Use
  Company Number: S06-FRA-01378-01

PATIENT
  Age: 73 Year
  Sex: Female

DRUGS (12)
  1. SEROPLEX (ESCITALOPRAM) [Suspect]
     Dosage: 10 MG BID PO
     Route: 048
     Dates: start: 20051219, end: 20060131
  2. AMOXICILLIN TRIHYDRATE [Suspect]
     Dosage: 1 G BID PO
     Route: 048
     Dates: start: 20060126, end: 20060131
  3. INEXIUM (ESOMEPRAZOLE) [Suspect]
     Dosage: 20 MG QD PO
     Route: 048
     Dates: start: 20060127, end: 20060207
  4. COVERSYL (PERINDOPRIL) [Suspect]
     Dosage: 4 MG QD PO
     Route: 048
     Dates: start: 20051213, end: 20060205
  5. VASTAREL (TRIMETAZIDINE HYDROCHLORIDE) [Concomitant]
  6. CARVEDILOL [Concomitant]
  7. KARDEGIC (ACETYLSALICYLATE LYSINE) [Concomitant]
  8. RISPERDAL [Concomitant]
  9. ZOLPIDEM TARTRATE [Concomitant]
  10. PEVARYL (ECONAZOLE NITRATE) [Concomitant]
  11. PRAVASTATIN [Concomitant]
  12. OMEPRAZOLE [Concomitant]

REACTIONS (7)
  - BODY TEMPERATURE DECREASED [None]
  - DEHYDRATION [None]
  - DIARRHOEA [None]
  - HYPOKALAEMIA [None]
  - HYPONATRAEMIA [None]
  - ORTHOSTATIC HYPOTENSION [None]
  - VOMITING [None]
